FAERS Safety Report 21922466 (Version 2)
Quarter: 2023Q1

REPORT INFORMATION
  Report Type: Spontaneous
  Country: IT (occurrence: IT)
  Receive Date: 20230128
  Receipt Date: 20230314
  Transmission Date: 20230417
  Serious: Yes (Death, Life-Threatening, Hospitalization)
  Sender: FDA-Public Use
  Company Number: None

PATIENT
  Age: 17 Year
  Sex: Male

DRUGS (3)
  1. KYMRIAH [Suspect]
     Active Substance: TISAGENLECLEUCEL
     Indication: Product used for unknown indication
     Dosage: UNK, ONCE/SINGLE (UNA SOLA SOMMINISTRAZIONE EV)
     Route: 042
     Dates: start: 20220927
  2. FLUDARA [Suspect]
     Active Substance: FLUDARABINE PHOSPHATE
     Indication: B-cell type acute leukaemia
     Dosage: 50.1 MG, QD (30 MG/MQ/DIE)
     Route: 042
     Dates: start: 20220921, end: 20220924
  3. CYCLOPHOSPHAMIDE [Concomitant]
     Active Substance: CYCLOPHOSPHAMIDE
     Indication: B-cell type acute leukaemia
     Dosage: 835 MG, Q24H
     Route: 042
     Dates: start: 20220921, end: 20220922

REACTIONS (3)
  - Bone marrow failure [Fatal]
  - Apallic syndrome [Fatal]
  - Immune effector cell-associated neurotoxicity syndrome [Fatal]

NARRATIVE: CASE EVENT DATE: 20220928
